FAERS Safety Report 8805664 (Version 1)
Quarter: 2012Q4

REPORT INFORMATION
  Report Type: Spontaneous
  Country: IT (occurrence: None)
  Receive Date: 20120917
  Receipt Date: 20120917
  Transmission Date: 20130627
  Serious: Yes (Other)
  Sender: FDA-Public Use
  Company Number: DSA_59444_2012

PATIENT

DRUGS (7)
  1. FLUOROURACIL (FLUOROURACIL) [Suspect]
     Indication: COLORECTAL CANCER METASTATIC
     Route: 040
  2. FLUOROURACIL (FLUOROURACIL) [Suspect]
     Indication: COLORECTAL CANCER METASTATIC
     Route: 042
  3. FLUOROURACIL (FLUOROURACIL) [Suspect]
     Indication: COLORECTAL CANCER METASTATIC
     Route: 042
  4. OXALIPLATIN (OXALIPLATIN) [Suspect]
     Route: 042
  5. OXALIPLATIN (OXALIPLATIN) [Suspect]
     Route: 042
  6. LEUCOVORIN /00566702/ [Suspect]
     Route: 042
  7. LEUCOVORIN /00566702/ [Suspect]
     Route: 042

REACTIONS (2)
  - Nausea [None]
  - Vomiting [None]
